FAERS Safety Report 8106157-3 (Version None)
Quarter: 2012Q1

REPORT INFORMATION
  Report Type: 
  Country: None (occurrence: None)
  Receive Date: 20120202
  Receipt Date: 20120124
  Transmission Date: 20120608
  Serious: Yes (Death)
  Sender: FDA-Public Use
  Company Number: US-TEVA-319418USA

PATIENT
  Sex: Female

DRUGS (15)
  1. DIAZEPAM [Suspect]
     Dosage: 20 MILLIGRAM;
  2. NEURONTIN [Concomitant]
     Dates: end: 20111211
  3. AMPHETAMINE AND DEXTROAMPHETAMINE SALTS [Suspect]
  4. BACLOFEN [Suspect]
     Route: 037
  5. TYSABRI [Suspect]
  6. SINGULAIR [Suspect]
     Dosage: 10 MILLIGRAM;
  7. ADDERALL 5 [Concomitant]
     Dates: end: 20111211
  8. ZANAFLEX [Suspect]
     Indication: MUSCLE RELAXANT THERAPY
     Route: 048
  9. GILENYA [Suspect]
     Indication: SECONDARY PROGRESSIVE MULTIPLE SCLEROSIS
     Route: 048
     Dates: start: 20110225, end: 20110318
  10. LOVENOX [Concomitant]
     Dates: end: 20111211
  11. CITALOPRAM (NGX) [Suspect]
     Indication: DEPRESSION
     Dosage: 20 MILLIGRAM;
  12. ACETAMINOPHEN AND HYDROCODONE BITARTRATE [Suspect]
     Indication: PAIN
     Dosage: 10/500 MG
  13. GABAPENTIN [Suspect]
     Dosage: 1200 MILLIGRAM;
     Route: 048
  14. PREVACID [Concomitant]
     Dates: end: 20111211
  15. VITAMIN B-12 [Concomitant]
     Dates: end: 20111211

REACTIONS (7)
  - PNEUMONIA [None]
  - CACHEXIA [None]
  - BLOOD PRESSURE DECREASED [None]
  - DRUG INEFFECTIVE [None]
  - FALL [None]
  - MULTIPLE SCLEROSIS [None]
  - ASTHENIA [None]
